FAERS Safety Report 9259863 (Version 3)
Quarter: 2013Q3

REPORT INFORMATION
  Report Type: Spontaneous
  Country: JP (occurrence: JP)
  Receive Date: 20130429
  Receipt Date: 20130802
  Transmission Date: 20140515
  Serious: Yes (Hospitalization, Other)
  Sender: FDA-Public Use
  Company Number: JP-009507513-1304JPN015956

PATIENT
  Age: 66 Year
  Sex: Male

DRUGS (12)
  1. REFLEX [Suspect]
     Indication: MAJOR DEPRESSION
     Dosage: 15 MG, QD
     Route: 048
     Dates: start: 20130227, end: 20130307
  2. CARBIDOPA (+) LEVODOPA [Concomitant]
     Indication: PARKINSON^S DISEASE
     Dosage: 300 MG/DAY
     Route: 048
     Dates: start: 20110525
  3. AMANTADINE HYDROCHLORIDE [Concomitant]
     Indication: PARKINSON^S DISEASE
     Dosage: 50 MG DAILY
     Route: 048
     Dates: start: 20110525
  4. PRAMIPEXOLE DIHYDROCHLORIDE [Concomitant]
     Indication: PARKINSON^S DISEASE
     Dosage: 0.375 MG DAILY
     Route: 048
     Dates: start: 20110525
  5. TAMSULOSIN HYDROCHLORIDE [Concomitant]
     Indication: PRODUCT USED FOR UNKNOWN INDICATION
     Dosage: 0.2 MG DAILY
     Route: 048
  6. PROPANTHELINE BROMIDE [Concomitant]
     Indication: PRODUCT USED FOR UNKNOWN INDICATION
     Dosage: 15 MG DAILY
     Route: 048
  7. PROPIVERINE HYDROCHLORIDE [Concomitant]
     Indication: PRODUCT USED FOR UNKNOWN INDICATION
     Dosage: 40 MG DAILY
     Route: 048
  8. RINGERS LACTATE MACO PHARMA [Concomitant]
     Indication: NEUROLEPTIC MALIGNANT SYNDROME
     Dosage: 1000 ML DAILY
     Route: 041
     Dates: start: 20130312, end: 20130314
  9. RINGERS LACTATE MACO PHARMA [Concomitant]
     Dosage: 500 ML DAILY
     Route: 041
     Dates: start: 20130314, end: 20130315
  10. DEXTROSE (+) ELECTROLYTES (UNSPECIFIED) [Concomitant]
     Dosage: 1000 ML DAILY
     Route: 041
     Dates: start: 20130312, end: 20130313
  11. DEXTROSE (+) ELECTROLYTES (UNSPECIFIED) [Concomitant]
     Dosage: 2000 ML DAILY
     Route: 041
     Dates: start: 20130313, end: 20130314
  12. DEXTROSE (+) ELECTROLYTES (UNSPECIFIED) [Concomitant]
     Dosage: 1000 ML DAILY
     Route: 041
     Dates: start: 20130314, end: 20130315

REACTIONS (1)
  - Neuroleptic malignant syndrome [Recovered/Resolved]
